FAERS Safety Report 6544955-8 (Version None)
Quarter: 2010Q1

REPORT INFORMATION
  Report Type: 
  Country: None (occurrence: None)
  Receive Date: 20100121
  Receipt Date: 20100113
  Transmission Date: 20100710
  Serious: Yes (Life-Threatening)
  Sender: FDA-Public Use
  Company Number: AU-ROCHE-659386

PATIENT
  Sex: Female
  Weight: 111 kg

DRUGS (2)
  1. HERCEPTIN [Suspect]
     Indication: BREAST CANCER
     Dosage: PATIENT RECEIVED ONLY 1 DOSE: LOADING DOSE
     Route: 042
     Dates: start: 20090908, end: 20090929
  2. PACLITAXEL [Concomitant]

REACTIONS (1)
  - PANCREATITIS [None]
